FAERS Safety Report 7301062-4 (Version None)
Quarter: 2011Q1

REPORT INFORMATION
  Report Type: 
  Country: None (occurrence: None)
  Receive Date: 20110218
  Receipt Date: 20110210
  Transmission Date: 20110831
  Serious: Yes (Hospitalization, Other)
  Sender: FDA-Public Use
  Company Number: US-US-EMD SERONO, INC.-7015017

PATIENT
  Sex: Male
  Weight: 91 kg

DRUGS (4)
  1. REBIF [Suspect]
     Route: 058
     Dates: start: 20101201
  2. REBIF [Suspect]
     Indication: MULTIPLE SCLEROSIS
     Route: 058
     Dates: start: 20070626, end: 20100901
  3. MULTI-VITAMINS [Concomitant]
  4. VITAMIN B-12 [Concomitant]
     Indication: VITAMIN B12 DEFICIENCY

REACTIONS (5)
  - LYMPHOCYTE MORPHOLOGY ABNORMAL [None]
  - WHITE BLOOD CELL COUNT INCREASED [None]
  - ROTATOR CUFF SYNDROME [None]
  - MUSCULAR WEAKNESS [None]
  - MULTIPLE SCLEROSIS RELAPSE [None]
